FAERS Safety Report 22389655 (Version 2)
Quarter: 2024Q4

REPORT INFORMATION
  Report Type: Report from Study
  Country: DE (occurrence: DE)
  Receive Date: 20230531
  Receipt Date: 20241211
  Transmission Date: 20250114
  Serious: Yes (Other)
  Sender: NOVARTIS
  Company Number: DE-002147023-NVSC2023DE121627

PATIENT
  Sex: Female

DRUGS (1)
  1. COSENTYX [Suspect]
     Active Substance: SECUKINUMAB
     Indication: Axial spondyloarthritis
     Dosage: UNK (ROUTE: INJECTION NOS)
     Route: 065

REACTIONS (6)
  - Corneal dystrophy [Unknown]
  - Age-related macular degeneration [Unknown]
  - Adrenal adenoma [Unknown]
  - Asthma [Unknown]
  - Bronchitis chronic [Unknown]
  - COVID-19 [Unknown]

NARRATIVE: CASE EVENT DATE: 20230324
